FAERS Safety Report 10058407 (Version 2)
Quarter: 2014Q2

REPORT INFORMATION
  Report Type: Spontaneous
  Country: US (occurrence: US)
  Receive Date: 20140404
  Receipt Date: 20140404
  Transmission Date: 20141212
  Serious: Yes (Other)
  Sender: FDA-Public Use
  Company Number: US-AMGEN-USASP2012045565

PATIENT
  Age: 43 Year
  Sex: Female

DRUGS (1)
  1. ENBREL [Suspect]
     Indication: RHEUMATOID ARTHRITIS
     Dosage: 50 MG, QWK
     Route: 065
     Dates: start: 19981101, end: 201312

REACTIONS (15)
  - Abasia [Not Recovered/Not Resolved]
  - Mental impairment [Not Recovered/Not Resolved]
  - Depression [Not Recovered/Not Resolved]
  - Activities of daily living impaired [Not Recovered/Not Resolved]
  - Joint instability [Not Recovered/Not Resolved]
  - Chondropathy [Not Recovered/Not Resolved]
  - Musculoskeletal stiffness [Not Recovered/Not Resolved]
  - Tooth fracture [Recovered/Resolved]
  - Localised infection [Recovered/Resolved]
  - Arthralgia [Not Recovered/Not Resolved]
  - Pain in extremity [Not Recovered/Not Resolved]
  - Mobility decreased [Not Recovered/Not Resolved]
  - Anxiety [Not Recovered/Not Resolved]
  - Joint swelling [Not Recovered/Not Resolved]
  - Peripheral swelling [Not Recovered/Not Resolved]
